FAERS Safety Report 6093458-6 (Version None)
Quarter: 2009Q1

REPORT INFORMATION
  Report Type: 
  Country: None (occurrence: None)
  Receive Date: 20090226
  Receipt Date: 20090224
  Transmission Date: 20090719
  Serious: Yes (Other)
  Sender: FDA-Public Use
  Company Number: ES-ABBOTT-09P-144-0496315-00

PATIENT
  Age: 45 Year
  Sex: Male

DRUGS (6)
  1. RITONAVIR [Suspect]
     Indication: ANTIRETROVIRAL THERAPY
     Dosage: NOT REPORTED
  2. ATAZANAVIR SULFATE [Interacting]
     Indication: ANTIRETROVIRAL THERAPY
     Dosage: NOT REPORTED
  3. TENOFOVIR DISOPROXIL FUMARATE [Interacting]
     Indication: ANTIRETROVIRAL THERAPY
     Dosage: NOT REPORTED
  4. EMTRICITABINE [Interacting]
     Indication: ANTIRETROVIRAL THERAPY
     Dosage: NOT REPORTED
  5. OMEPRAZOLE [Interacting]
     Indication: DRUG USE FOR UNKNOWN INDICATION
     Dosage: NOT REPORTED
  6. FAMOTIDINE [Concomitant]
     Indication: DRUG USE FOR UNKNOWN INDICATION

REACTIONS (2)
  - DRUG INTERACTION [None]
  - DRUG RESISTANCE [None]
